FAERS Safety Report 9397254 (Version 2)
Quarter: 2013Q3

REPORT INFORMATION
  Report Type: Spontaneous
  Country: FI (occurrence: FI)
  Receive Date: 20130712
  Receipt Date: 20130730
  Transmission Date: 20140515
  Serious: Yes (Other)
  Sender: FDA-Public Use
  Company Number: FI-MERCK-1306FIN011936

PATIENT
  Age: 58 Year
  Sex: Female

DRUGS (2)
  1. NOXAFIL [Suspect]
     Indication: FUNGAL INFECTION
     Dosage: TOTAL  DAILY DOSE: 800 MG/20 ML; FREQUENCY 10 ML X2
     Route: 048
     Dates: start: 201304
  2. HYDROCORTISONE SODIUM PHOSPHATE [Concomitant]
     Dosage: 5 MG DAILY
     Route: 048
     Dates: end: 20130714

REACTIONS (5)
  - Acute leukaemia [Unknown]
  - Gait disturbance [Not Recovered/Not Resolved]
  - Stem cell transplant [Unknown]
  - Synovitis [Not Recovered/Not Resolved]
  - Peripheral sensory neuropathy [Not Recovered/Not Resolved]
